FAERS Safety Report 7657501-2 (Version None)
Quarter: 2011Q3

REPORT INFORMATION
  Report Type: 
  Country: None (occurrence: None)
  Receive Date: 20110804
  Receipt Date: 20110803
  Transmission Date: 20111222
  Serious: Yes (Death)
  Sender: FDA-Public Use
  Company Number: BR-ABBOTT-11P-020-0843875-00

PATIENT
  Sex: Female

DRUGS (2)
  1. UNKNOWN MEDICATIONS [Concomitant]
     Indication: PRODUCT USED FOR UNKNOWN INDICATION
  2. HUMIRA [Suspect]
     Indication: CROHN'S DISEASE
     Dates: start: 20110530

REACTIONS (4)
  - PLEURAL EFFUSION [None]
  - MALAISE [None]
  - CROHN'S DISEASE [None]
  - ACUTE RESPIRATORY FAILURE [None]
